FAERS Safety Report 7911060-5 (Version None)
Quarter: 2011Q4

REPORT INFORMATION
  Report Type: 
  Country: None (occurrence: None)
  Receive Date: 20111114
  Receipt Date: 20111107
  Transmission Date: 20120403
  Serious: No
  Sender: FDA-Public Use
  Company Number: US-BIOGENIDEC-2011BI042354

PATIENT
  Sex: Female

DRUGS (14)
  1. LATUDA [Concomitant]
     Indication: BIPOLAR DISORDER
     Route: 048
     Dates: start: 20100101, end: 20111106
  2. METHYLPHENIDATE [Concomitant]
     Indication: DEPRESSION
  3. LISINOPRIL [Concomitant]
     Indication: HYPERTENSION
  4. TRAZODONE HCL [Concomitant]
     Indication: INSOMNIA
  5. OPANA ER [Concomitant]
     Indication: INTERVERTEBRAL DISC DEGENERATION
  6. OXYMORPHONE [Concomitant]
     Indication: INTERVERTEBRAL DISC PROTRUSION
  7. AVONEX [Suspect]
     Indication: MULTIPLE SCLEROSIS
     Route: 030
     Dates: start: 20111031, end: 20111031
  8. OXYMORPHONE [Concomitant]
     Indication: BACK PAIN
  9. OXYMORPHONE [Concomitant]
     Indication: INTERVERTEBRAL DISC DEGENERATION
  10. ABILIFY [Concomitant]
     Indication: BIPOLAR DISORDER
     Route: 048
     Dates: start: 20111104
  11. AVONEX [Suspect]
     Route: 030
     Dates: start: 20111024, end: 20111024
  12. BUPROPION HCL [Concomitant]
     Indication: DEPRESSION
     Route: 048
     Dates: start: 20111104
  13. HYDROXYZINE [Concomitant]
     Indication: ANXIETY
  14. CLONAZEPAM [Concomitant]
     Indication: ANXIETY

REACTIONS (5)
  - GENERAL SYMPTOM [None]
  - FATIGUE [None]
  - INFLUENZA LIKE ILLNESS [None]
  - DEPRESSION [None]
  - MOBILITY DECREASED [None]
